FAERS Safety Report 19869113 (Version 2)
Quarter: 2022Q1

REPORT INFORMATION
  Report Type: Spontaneous
  Country: US (occurrence: US)
  Receive Date: 20210922
  Receipt Date: 20220308
  Transmission Date: 20220423
  Serious: No
  Sender: FDA-Public Use
  Company Number: US-PFIZER INC-2021708575

PATIENT
  Age: 29 Year
  Sex: Female

DRUGS (1)
  1. XELJANZ XR [Suspect]
     Active Substance: TOFACITINIB CITRATE
     Indication: Rheumatoid arthritis
     Dosage: 11 MG, DAILY
     Route: 048
     Dates: start: 20210511

REACTIONS (5)
  - Product dose omission in error [Unknown]
  - Memory impairment [Unknown]
  - Illness [Unknown]
  - Discouragement [Unknown]
  - Depressed mood [Unknown]
